FAERS Safety Report 16476990 (Version 1)
Quarter: 2019Q2

REPORT INFORMATION
  Report Type: Spontaneous
  Country: CH (occurrence: CH)
  Receive Date: 20190626
  Receipt Date: 20190626
  Transmission Date: 20190711
  Serious: Yes (Hospitalization, Other)
  Sender: FDA-Public Use
  Company Number: CH-SA-2019SA169660

PATIENT
  Age: 83 Year
  Sex: Male
  Weight: 76.6 kg

DRUGS (5)
  1. SINTROM [Concomitant]
     Active Substance: ACENOCOUMAROL
     Dosage: SECOND MEDICAL SCHEME
     Route: 048
  2. RIFINAH [Suspect]
     Active Substance: ISONIAZID\RIFAMPIN
     Indication: TUBERCULOSIS
     Dosage: 4 DF, QD
     Route: 048
     Dates: start: 20190120, end: 20190418
  3. AMARYL [Concomitant]
     Active Substance: GLIMEPIRIDE
     Dosage: 0.5 DF, QD
     Route: 048
  4. PREDNISON STREULI [Concomitant]
     Active Substance: PREDNISONE
     Dosage: 1 DF, QD
     Route: 048
  5. SOTALOL MEPHA [Concomitant]
     Active Substance: SOTALOL HYDROCHLORIDE
     Dosage: 0.5 DF, BID
     Route: 048

REACTIONS (2)
  - Interstitial lung disease [Not Recovered/Not Resolved]
  - Pleural effusion [Recovering/Resolving]

NARRATIVE: CASE EVENT DATE: 20190524
